FAERS Safety Report 7308179-9 (Version None)
Quarter: 2011Q1

REPORT INFORMATION
  Report Type: 
  Country: None (occurrence: None)
  Receive Date: 20110210
  Receipt Date: 20110202
  Transmission Date: 20110831
  Serious: Yes (Hospitalization, Other)
  Sender: FDA-Public Use
  Company Number: TRP_07540_2011

PATIENT
  Age: 14 Year
  Sex: Male

DRUGS (9)
  1. CYCLOPHOSPHAMIDE [Suspect]
     Indication: SYSTEMIC LUPUS ERYTHEMATOSUS
     Dosage: 750 MG/M2 1X/MONTH, [PULSE]
  2. PREDNISONE [Suspect]
     Indication: SYSTEMIC LUPUS ERYTHEMATOSUS
     Dosage: 1 MG/KG BID ORAL
     Route: 048
  3. AMPHOTERICIN B [Suspect]
     Indication: ZYGOMYCOSIS
     Dosage: 5 MG/KG PER DAY FOR 6 MONTHS INTRAVENOUS (NOT OTHERWISE SPECIFIED)
     Route: 042
  4. AMPHOTERICIN B [Suspect]
     Indication: BACTERIAL SEPSIS
     Dosage: 5 MG/KG PER DAY FOR 6 MONTHS INTRAVENOUS (NOT OTHERWISE SPECIFIED)
     Route: 042
  5. AMPHOTERICIN B [Suspect]
     Indication: PERITONITIS
     Dosage: 5 MG/KG PER DAY FOR 6 MONTHS INTRAVENOUS (NOT OTHERWISE SPECIFIED)
     Route: 042
  6. METHYLPREDNISOLONE ACETATE [Suspect]
     Indication: SYSTEMIC LUPUS ERYTHEMATOSUS
     Dosage: 30 MG/KG 1X/WEEK, [PULSE; MAXIMUM 1 GRAM]
  7. TACROLIMUS [Suspect]
     Indication: SYSTEMIC LUPUS ERYTHEMATOSUS
     Dosage: 0.06 MG/KG 1X12 HOURS INTAVENOUS (NOT OTHERWISE SPECIFIED)
     Route: 042
  8. MICAFUNGIN [Suspect]
     Indication: ZYGOMYCOSIS
     Dosage: 3.5 MG/KG PER DAY FOR 6 MONTHS INTRAVENOUS (NOT OTHERWISE SPECIFIED)
     Route: 042
  9. HYDROXYCHLOROQUINE [Suspect]
     Indication: SYSTEMIC LUPUS ERYTHEMATOSUS
     Dosage: 6 MG/KG QD

REACTIONS (4)
  - WHITE BLOOD CELL COUNT INCREASED [None]
  - HAEMOGLOBIN DECREASED [None]
  - REFUSAL OF TREATMENT BY RELATIVE [None]
  - HAEMATEMESIS [None]
